FAERS Safety Report 7427225-5 (Version None)
Quarter: 2011Q2

REPORT INFORMATION
  Report Type: 
  Country: None (occurrence: None)
  Receive Date: 20110420
  Receipt Date: 20110414
  Transmission Date: 20111010
  Serious: No
  Sender: FDA-Public Use
  Company Number: US-PFIZER INC-2011083048

PATIENT
  Sex: Female

DRUGS (1)
  1. ALDACTONE [Suspect]
     Indication: POLYCYSTIC OVARIES

REACTIONS (2)
  - FATIGUE [None]
  - ASTHENIA [None]
